FAERS Safety Report 6681689-3 (Version None)
Quarter: 2010Q2

REPORT INFORMATION
  Report Type: 
  Country: None (occurrence: None)
  Receive Date: 20100414
  Receipt Date: 20100408
  Transmission Date: 20101027
  Serious: Yes (Other)
  Sender: FDA-Public Use
  Company Number: AU-WYE-G05900010

PATIENT
  Sex: Male

DRUGS (14)
  1. EFFEXOR XR [Suspect]
     Dosage: 75MG DAILY
     Route: 048
     Dates: start: 20100310, end: 20100315
  2. AMLODIPINE [Concomitant]
     Dosage: 5MG 1/2 A TABLET IN THE MORNING
  3. AVANDIA [Concomitant]
     Dosage: 8MG 1 IN THE MORNING
  4. CODEINE SULFATE [Concomitant]
     Dosage: 30MG 2 EVERY 4 HOURS PRN
  5. LOSEC [Concomitant]
     Dosage: 20MG 1 IN THE MORNING
  6. VENTOLIN [Concomitant]
     Dosage: CFC-FREE 100MCG/DOSE INHALER 2 EVERY 4 HOURS PRN
  7. NOVORAPID [Concomitant]
     Dosage: 3ML 100U/ML INJECTION 2 U DAILY BEFORE MEALS
  8. PANAMAX [Concomitant]
     Dosage: 500MG 2 EVERY 4 HOURS
  9. PROTAPHANE MC [Concomitant]
     Dosage: INNOLET 3ML 100U/ML 10U BEFORE BED
  10. QUINATE [Concomitant]
     Dosage: 300MG 1 BEFORE BED PRN FOR CRAMPS
  11. ZOLPIDEM [Concomitant]
     Dosage: 10MG 1 BEFORE BED
  12. VALIUM [Concomitant]
     Dosage: 5MG 1 DAILY PRN
  13. ADVANTAN [Concomitant]
     Dosage: 0.1% OINTMENT APPLY DAILY TO RASH
  14. MOBIC [Concomitant]
     Dosage: 15MG 1/2-1 DAILY WITH FOOD

REACTIONS (10)
  - ALANINE AMINOTRANSFERASE INCREASED [None]
  - ASPARTATE AMINOTRANSFERASE INCREASED [None]
  - BLOOD ALBUMIN DECREASED [None]
  - BLOOD ALKALINE PHOSPHATASE INCREASED [None]
  - BLOOD BILIRUBIN INCREASED [None]
  - GAMMA-GLUTAMYLTRANSFERASE INCREASED [None]
  - OEDEMA PERIPHERAL [None]
  - PROTEIN TOTAL DECREASED [None]
  - URINE COLOUR ABNORMAL [None]
  - VOMITING [None]
